FAERS Safety Report 4532062-5 (Version None)
Quarter: 2004Q4

REPORT INFORMATION
  Report Type: 
  Country: None (occurrence: None)
  Receive Date: 20041217
  Receipt Date: 20041201
  Transmission Date: 20050328
  Serious: Yes (Other)
  Sender: FDA-Public Use
  Company Number: 2004-0007394

PATIENT
  Age: 30 Year
  Sex: Male

DRUGS (3)
  1. VIREAD [Suspect]
  2. KALETRA [Concomitant]
  3. VIDEX [Concomitant]

REACTIONS (1)
  - NEPHROGENIC DIABETES INSIPIDUS [None]
